FAERS Safety Report 5072368-7 (Version None)
Quarter: 2006Q3

REPORT INFORMATION
  Report Type: 
  Country: None (occurrence: None)
  Receive Date: 20060802
  Receipt Date: 20060720
  Transmission Date: 20061208
  Serious: Yes (Hospitalization)
  Sender: FDA-Public Use
  Company Number: 2006-DE-03758GD

PATIENT
  Age: 44 Year
  Sex: Female

DRUGS (6)
  1. PREDNISONE TAB [Suspect]
     Indication: SYSTEMIC LUPUS ERYTHEMATOSUS
     Dosage: 20 MG  : 40 MG
  2. CYCLOSPORINE [Concomitant]
  3. BETA-BLOCKER      (BETA BLOCKING AGENTS) [Concomitant]
  4. CALCIUM INHIBITOR       (CALCIUM CHANNEL BLOCKERS) [Concomitant]
  5. ACE INHIBITOR       (ACE INHIBITORS AND DIURETICS) [Concomitant]
  6. DIURETIC  (DIURETICS) [Concomitant]

REACTIONS (2)
  - CHORIORETINOPATHY [None]
  - HYPERTENSION [None]
